FAERS Safety Report 5214738-X (Version None)
Quarter: 2007Q1

REPORT INFORMATION
  Report Type: 
  Country: None (occurrence: None)
  Receive Date: 20070117
  Receipt Date: 20070108
  Transmission Date: 20070707
  Serious: Yes (Hospitalization, Other)
  Sender: FDA-Public Use
  Company Number: 100#03#2007-00112

PATIENT
  Age: 58 Year
  Sex: Male

DRUGS (7)
  1. CITALOPRAM (CITALOPRAM) (CITALOPRAM) [Suspect]
     Indication: DRUG USE FOR UNKNOWN INDICATION
     Dosage: 20 MG ORAL
     Route: 048
     Dates: start: 20060918
  2. ACETYLSALICYLIC ACID (ACETYLSALICYLIC ACID) (ACETYLSALICYLIC ACID) [Concomitant]
  3. CO-CODAMOL (PANADEINE CO) (CETOMACROGOL, CODEINE, PARACETAMOL) [Concomitant]
  4. DIPYRIDAMOLE [Concomitant]
  5. SIMVASTATIN (SIMVASTATIN) (SIMVASTATIN) [Concomitant]
  6. THIAMINE (THIAMINE) (THIAMINE) [Concomitant]
  7. VITAMINS (VITAMINS) (VITAMINS) [Concomitant]

REACTIONS (2)
  - GASTROINTESTINAL HAEMORRHAGE [None]
  - HAEMATEMESIS [None]
